FAERS Safety Report 8525673 (Version 2)
Quarter: 2012Q4

REPORT INFORMATION
  Report Type: Report from Study
  Country: PE (occurrence: PE)
  Receive Date: 20120423
  Receipt Date: 20121112
  Transmission Date: 20130627
  Serious: Yes (Hospitalization)
  Sender: FDA-Public Use
  Company Number: PE-VIIV HEALTHCARE LIMITED-A0974226A

PATIENT
  Age: 27 Year
  Sex: Female

DRUGS (3)
  1. LAMIVUDINE-HIV [Suspect]
     Indication: HIV INFECTION
     Dates: start: 20120105, end: 20120305
  2. LOPINAVIR + RITONAVIR [Suspect]
     Indication: HIV INFECTION
     Dates: start: 20120105, end: 20120305
  3. DIDANOSINE [Suspect]
     Indication: HIV INFECTION
     Dates: start: 20120105, end: 20120305

REACTIONS (3)
  - Vomiting [Recovered/Resolved]
  - Drug intolerance [Recovered/Resolved]
  - Liver disorder [Unknown]
